FAERS Safety Report 22813199 (Version 6)
Quarter: 2025Q2

REPORT INFORMATION
  Report Type: Spontaneous
  Country: CZ (occurrence: CZ)
  Receive Date: 20230811
  Receipt Date: 20250504
  Transmission Date: 20250716
  Serious: Yes (Hospitalization, Other)
  Sender: SANOFI AVENTIS
  Company Number: CZ-SA-SAC20230810000658

PATIENT
  Age: 54 Year
  Sex: Male

DRUGS (13)
  1. DUPIXENT [Suspect]
     Active Substance: DUPILUMAB
     Indication: Chronic rhinosinusitis with nasal polyps
     Dosage: 300 MG, QOW
     Route: 065
     Dates: start: 20230723
  2. DUPIXENT [Suspect]
     Active Substance: DUPILUMAB
     Indication: Asthma
     Route: 058
     Dates: start: 20230805, end: 20231102
  3. METHYLPREDNISOLONE SODIUM SUCCINATE [Suspect]
     Active Substance: METHYLPREDNISOLONE SODIUM SUCCINATE
     Indication: Pneumonitis
     Route: 042
  4. METHYLPREDNISOLONE [Suspect]
     Active Substance: METHYLPREDNISOLONE
     Route: 048
     Dates: end: 20230926
  5. METHYLPREDNISOLONE [Suspect]
     Active Substance: METHYLPREDNISOLONE
     Dosage: 8 MG, QD
     Route: 048
     Dates: start: 20230927, end: 20231003
  6. HYDROCORTISONE [Suspect]
     Active Substance: HYDROCORTISONE
     Route: 042
     Dates: start: 20231005
  7. AUGMENTIN [Suspect]
     Active Substance: AMOXICILLIN\CLAVULANATE POTASSIUM
  8. MONTELAR [LEVOCETIRIZINE DIHYDROCHLORIDE;MONTELUKAST SODIUM] [Concomitant]
     Indication: Asthma
  9. FULLHALE [Concomitant]
     Indication: Asthma
  10. CETIRIZINE HYDROCHLORIDE [Concomitant]
     Active Substance: CETIRIZINE HYDROCHLORIDE
     Indication: Asthma
  11. CEFUROXIME SODIUM [Concomitant]
     Active Substance: CEFUROXIME SODIUM
  12. AVELOX [Concomitant]
     Active Substance: MOXIFLOXACIN HYDROCHLORIDE
  13. CLARITHROMYCIN [Concomitant]
     Active Substance: CLARITHROMYCIN

REACTIONS (31)
  - Pneumonia [Unknown]
  - Eosinophilic granulomatosis with polyangiitis [Unknown]
  - Eosinophil count increased [Recovering/Resolving]
  - Dyspnoea [Unknown]
  - Disturbance in attention [Unknown]
  - Headache [Unknown]
  - Myalgia [Unknown]
  - Respiratory disorder [Unknown]
  - Eye disorder [Unknown]
  - Connective tissue disorder [Unknown]
  - Mediastinal disorder [Unknown]
  - Angiopathy [Unknown]
  - Skin disorder [Unknown]
  - Musculoskeletal disorder [Unknown]
  - Bronchiectasis [Unknown]
  - Pneumonitis [Unknown]
  - Malaise [Unknown]
  - Body temperature increased [Unknown]
  - Nausea [Unknown]
  - Pyrexia [Unknown]
  - Fatigue [Unknown]
  - Cough [Unknown]
  - Tremor [Unknown]
  - Paraesthesia [Unknown]
  - Intraocular pressure increased [Unknown]
  - Antineutrophil cytoplasmic antibody positive [Unknown]
  - Dizziness [Unknown]
  - Pain in extremity [Unknown]
  - Erythema [Unknown]
  - Vertigo [Unknown]
  - Rash [Recovered/Resolved]

NARRATIVE: CASE EVENT DATE: 20230101
